FAERS Safety Report 9173922 (Version 1)
Quarter: 2013Q1

REPORT INFORMATION
  Report Type: Spontaneous
  Country: US (occurrence: None)
  Receive Date: 20130318
  Receipt Date: 20130318
  Transmission Date: 20140127
  Serious: Yes (Life-Threatening, Other)
  Sender: FDA-Public Use
  Company Number: None

PATIENT
  Age: 72 Year
  Sex: Male
  Weight: 69.85 kg

DRUGS (1)
  1. ALLOPURINOL [Suspect]
     Indication: GOUT
     Dates: start: 20121231, end: 20130204

REACTIONS (4)
  - Rash generalised [None]
  - Heart rate increased [None]
  - Renal failure [None]
  - Hepatic failure [None]
